FAERS Safety Report 5627401-8 (Version None)
Quarter: 2008Q1

REPORT INFORMATION
  Report Type: 
  Country: None (occurrence: None)
  Receive Date: 20080215
  Receipt Date: 20080205
  Transmission Date: 20080703
  Serious: Yes (Hospitalization)
  Sender: FDA-Public Use
  Company Number: IT-NOVOPROD-271897

PATIENT
  Sex: Male
  Weight: 57 kg

DRUGS (2)
  1. LEVEMIR [Suspect]
     Indication: DRUG USE FOR UNKNOWN INDICATION
  2. GLICAZIDA [Concomitant]
     Dosage: 3 TAB, QD
     Route: 048
     Dates: start: 20050101

REACTIONS (1)
  - CARDIAC DISORDER [None]
